FAERS Safety Report 11649649 (Version 1)
Quarter: 2015Q4

REPORT INFORMATION
  Report Type: Report from Study
  Country: CN (occurrence: CN)
  Receive Date: 20151021
  Receipt Date: 20151021
  Transmission Date: 20160304
  Serious: Yes (Hospitalization, Other)
  Sender: FDA-Public Use
  Company Number: CN-GILEAD-2015-0177120

PATIENT
  Age: 38 Year

DRUGS (1)
  1. ADEFOVIR DIPIVOXIL. [Suspect]
     Active Substance: ADEFOVIR DIPIVOXIL
     Indication: PRODUCT USED FOR UNKNOWN INDICATION
     Dosage: UNK
     Route: 065

REACTIONS (7)
  - Osteomalacia [Recovered/Resolved]
  - Blood phosphorus decreased [Recovered/Resolved]
  - Gait disturbance [Unknown]
  - Hyperphosphaturia [Unknown]
  - Bone pain [Unknown]
  - Hypophosphataemia [Unknown]
  - Arthralgia [Unknown]
